FAERS Safety Report 9893437 (Version 2)
Quarter: 2014Q2

REPORT INFORMATION
  Report Type: Report from Study
  Country: US (occurrence: TR)
  Receive Date: 20140213
  Receipt Date: 20140501
  Transmission Date: 20141212
  Serious: Yes (Death, Life-Threatening)
  Sender: FDA-Public Use
  Company Number: US-SA-2014SA017374

PATIENT
  Age: 72 Year
  Sex: Male
  Weight: 72 kg

DRUGS (8)
  1. DOCETAXEL [Suspect]
     Indication: NON-SMALL CELL LUNG CANCER STAGE IV
     Route: 042
     Dates: start: 20121115, end: 20121115
  2. DOCETAXEL [Suspect]
     Indication: NON-SMALL CELL LUNG CANCER STAGE IV
     Route: 042
     Dates: start: 20121218, end: 20121218
  3. BLINDED THERAPY [Suspect]
     Indication: NON-SMALL CELL LUNG CANCER STAGE IV
     Route: 042
     Dates: start: 20121115, end: 20121115
  4. BLINDED THERAPY [Suspect]
     Indication: NON-SMALL CELL LUNG CANCER STAGE IV
     Route: 042
     Dates: start: 20121218, end: 20121218
  5. AVIL [Concomitant]
  6. ULCERAN [Concomitant]
  7. DEXAMETHASONE [Concomitant]
  8. GRANISETRON [Concomitant]

REACTIONS (2)
  - Pulmonary haemorrhage [Fatal]
  - Dyspnoea [Unknown]
